FAERS Safety Report 15984512 (Version 1)
Quarter: 2019Q1

REPORT INFORMATION
  Report Type: Report from Study
  Country: None (occurrence: BE)
  Receive Date: 20190220
  Receipt Date: 20190220
  Transmission Date: 20190418
  Serious: Yes (Other)
  Sender: FDA-Public Use
  Company Number: BE-ABBVIE-19S-013-2670482-00

PATIENT
  Sex: Female

DRUGS (5)
  1. DUODOPA [Suspect]
     Active Substance: CARBIDOPA\LEVODOPA
     Indication: PARKINSON^S DISEASE
     Route: 050
     Dates: start: 20090209
  2. DUODOPA [Suspect]
     Active Substance: CARBIDOPA\LEVODOPA
     Dosage: DOSES CONTINUOUSLY MONITORED AND ADAPTED
     Route: 050
     Dates: start: 20100910, end: 20180820
  3. DUODOPA [Suspect]
     Active Substance: CARBIDOPA\LEVODOPA
     Dosage: MD= 3ML CD= 5ML/HR DURING 16HRS  ED= 2ML ND= 4ML/HR DURING 8HRS
     Route: 050
     Dates: start: 20180820, end: 20190215
  4. DUODOPA [Suspect]
     Active Substance: CARBIDOPA\LEVODOPA
     Dosage: MD= 3ML CD= 4.3ML/HR DURING 16HRS  ED= 2.1ML ND= 4ML/HR DURING 8HRS
     Route: 050
     Dates: end: 20100910
  5. DUODOPA [Suspect]
     Active Substance: CARBIDOPA\LEVODOPA
     Dosage: MD= 3ML CD= 4.9ML/HR DURING 16HRS  ED= 2ML ND= 4ML/HR DURING 8HRS
     Route: 050
     Dates: start: 20190215

REACTIONS (1)
  - Carpal tunnel syndrome [Unknown]
